FAERS Safety Report 13672398 (Version 1)
Quarter: 2017Q2

REPORT INFORMATION
  Report Type: Spontaneous
  Country: US (occurrence: US)
  Receive Date: 20170620
  Receipt Date: 20170620
  Transmission Date: 20170830
  Serious: Yes (Hospitalization)
  Sender: FDA-Public Use
  Company Number: None

PATIENT
  Age: 78 Year
  Sex: Female
  Weight: 48.6 kg

DRUGS (10)
  1. PRANDIN [Concomitant]
     Active Substance: REPAGLINIDE
  2. PANTOPRAZOLE [Concomitant]
     Active Substance: PANTOPRAZOLE
  3. URSODIOL. [Suspect]
     Active Substance: URSODIOL
     Indication: CHOLANGITIS
     Dosage: ?          OTHER FREQUENCY:.5 TAB AM, 1 TABPM;?
     Route: 048
     Dates: start: 20140108, end: 20170620
  4. CHOLESTYRAMINE. [Concomitant]
     Active Substance: CHOLESTYRAMINE
  5. RESTORIL [Concomitant]
     Active Substance: TEMAZEPAM
  6. LIDOCAINE. [Concomitant]
     Active Substance: LIDOCAINE
  7. METFORMIN [Concomitant]
     Active Substance: METFORMIN HYDROCHLORIDE
  8. DONEPEZIL. [Concomitant]
     Active Substance: DONEPEZIL
  9. PAXIL [Concomitant]
     Active Substance: PAROXETINE HYDROCHLORIDE
  10. MEMANTIN [Concomitant]
     Active Substance: MEMANTINE

REACTIONS (3)
  - Chronic obstructive pulmonary disease [None]
  - Pneumonia [None]
  - Bronchitis [None]

NARRATIVE: CASE EVENT DATE: 20161121
